FAERS Safety Report 15019758 (Version 1)
Quarter: 2018Q2

REPORT INFORMATION
  Report Type: Spontaneous
  Country: SE (occurrence: SE)
  Receive Date: 20180618
  Receipt Date: 20180618
  Transmission Date: 20180711
  Serious: Yes (Hospitalization)
  Sender: FDA-Public Use
  Company Number: SE-MICRO LABS LIMITED-BB2018-01166

PATIENT
  Age: 67 Year
  Sex: Male

DRUGS (3)
  1. CUBICIN [Interacting]
     Active Substance: DAPTOMYCIN
     Indication: DEVICE RELATED INFECTION
     Dosage: ^STYRKA 900, DOSERING 1^
     Route: 042
     Dates: start: 20161104, end: 20161117
  2. SIMVASTATIN. [Suspect]
     Active Substance: SIMVASTATIN
     Dates: start: 20100512, end: 20161117
  3. CUBICIN [Interacting]
     Active Substance: DAPTOMYCIN
     Dosage: ^STYRKA 900, DOSERING 1^
     Route: 042
     Dates: start: 20161205, end: 20170413

REACTIONS (2)
  - Drug interaction [Recovered/Resolved]
  - Rhabdomyolysis [Recovered/Resolved]

NARRATIVE: CASE EVENT DATE: 20161104
